FAERS Safety Report 14409189 (Version 3)
Quarter: 2018Q1

REPORT INFORMATION
  Report Type: Report from Study
  Country: US (occurrence: US)
  Receive Date: 20180119
  Receipt Date: 20180312
  Transmission Date: 20180509
  Serious: Yes (Other)
  Sender: FDA-Public Use
  Company Number: US-UCBSA-2018001296

PATIENT
  Sex: Male

DRUGS (4)
  1. TRILEPTAL [Concomitant]
     Active Substance: OXCARBAZEPINE
     Indication: PRODUCT USED FOR UNKNOWN INDICATION
     Dosage: UNK
  2. LEVETIRACETAM. [Suspect]
     Active Substance: LEVETIRACETAM
     Indication: TEMPORAL LOBE EPILEPSY
     Dosage: DAILY 4000 MG
  3. LEVETIRACETAM. [Suspect]
     Active Substance: LEVETIRACETAM
     Dosage: SOMETIMES CHEWING UP AN EXTRA PILL
  4. LAMICTAL [Suspect]
     Active Substance: LAMOTRIGINE
     Indication: PRODUCT USED FOR UNKNOWN INDICATION
     Dosage: 400 MG DAILY

REACTIONS (12)
  - Memory impairment [Not Recovered/Not Resolved]
  - Intentional overdose [Unknown]
  - Intentional product misuse [Unknown]
  - Simple partial seizures [Unknown]
  - Aura [Not Recovered/Not Resolved]
  - Abnormal behaviour [Unknown]
  - Generalised tonic-clonic seizure [Unknown]
  - Apathy [Unknown]
  - Depression [Unknown]
  - Irritability [Unknown]
  - Headache [Unknown]
  - Multiple-drug resistance [Unknown]
